FAERS Safety Report 24256880 (Version 5)
Quarter: 2025Q1

REPORT INFORMATION
  Report Type: Report from Study
  Country: CA (occurrence: CA)
  Receive Date: 20240828
  Receipt Date: 20250218
  Transmission Date: 20250409
  Serious: Yes (Other)
  Sender: TAKEDA
  Company Number: CA-TAKEDA-2019TUS027747

PATIENT
  Age: 36 Year
  Sex: Male

DRUGS (12)
  1. VEDOLIZUMAB [Suspect]
     Active Substance: VEDOLIZUMAB
     Indication: Crohn^s disease
  2. VEDOLIZUMAB [Suspect]
     Active Substance: VEDOLIZUMAB
     Dosage: 300 MILLIGRAM, Q4WEEKS
     Dates: start: 20190509
  3. VEDOLIZUMAB [Suspect]
     Active Substance: VEDOLIZUMAB
     Dosage: 300 MILLIGRAM, Q4WEEKS
  4. VEDOLIZUMAB [Suspect]
     Active Substance: VEDOLIZUMAB
     Dosage: 300 MILLIGRAM, Q4WEEKS
  5. PREDNISONE [Concomitant]
     Active Substance: PREDNISONE
  6. BUDESONIDE [Concomitant]
     Active Substance: BUDESONIDE
  7. TACROLIMUS [Concomitant]
     Active Substance: TACROLIMUS
  8. MYCOPHENOLIC ACID [Concomitant]
     Active Substance: MYCOPHENOLIC ACID
  9. URSODIOL [Concomitant]
     Active Substance: URSODIOL
  10. SULFATRIM [Concomitant]
     Active Substance: SULFAMETHOXAZOLE\TRIMETHOPRIM
  11. NALTREXONE [Concomitant]
     Active Substance: NALTREXONE
  12. NYSTATIN [Concomitant]
     Active Substance: NYSTATIN

REACTIONS (7)
  - Crohn^s disease [Unknown]
  - Abdominal discomfort [Recovering/Resolving]
  - Off label use [Unknown]
  - Functional gastrointestinal disorder [Unknown]
  - Vision blurred [Unknown]
  - Arthralgia [Unknown]
  - Rash papular [Unknown]

NARRATIVE: CASE EVENT DATE: 20190509
